FAERS Safety Report 11377135 (Version 1)
Quarter: 2015Q3

REPORT INFORMATION
  Report Type: Spontaneous
  Country: US (occurrence: US)
  Receive Date: 20150813
  Receipt Date: 20150813
  Transmission Date: 20151125
  Serious: No
  Sender: FDA-Public Use
  Company Number: US-GALDERMA-US15000315

PATIENT
  Sex: Male

DRUGS (1)
  1. METROGEL [Suspect]
     Active Substance: METRONIDAZOLE
     Indication: RASH MACULAR
     Dosage: 1%
     Route: 061

REACTIONS (3)
  - Expired product administered [Unknown]
  - Dry skin [Unknown]
  - Erythema [Unknown]
